FAERS Safety Report 7865162-2 (Version None)
Quarter: 2011Q4

REPORT INFORMATION
  Report Type: 
  Country: None (occurrence: None)
  Receive Date: 20111028
  Receipt Date: 20101025
  Transmission Date: 20120403
  Serious: No
  Sender: FDA-Public Use
  Company Number: US-GLAXOSMITHKLINE-A0888635A

PATIENT
  Age: 82 Year
  Sex: Female

DRUGS (3)
  1. SINGULAIR [Concomitant]
  2. ADVAIR DISKUS 100/50 [Suspect]
     Indication: ASTHMA
     Dosage: 1PUFF PER DAY
     Route: 055
  3. AEROBID [Concomitant]

REACTIONS (5)
  - APHONIA [None]
  - DRUG INEFFECTIVE [None]
  - SECRETION DISCHARGE [None]
  - COUGH [None]
  - DYSPHONIA [None]
